FAERS Safety Report 16653518 (Version 2)
Quarter: 2019Q3

REPORT INFORMATION
  Report Type: Spontaneous
  Country: IT (occurrence: IT)
  Receive Date: 20190731
  Receipt Date: 20190814
  Transmission Date: 20191004
  Serious: Yes (Hospitalization, Other)
  Sender: FDA-Public Use
  Company Number: IT-GILEAD-2019-0420927

PATIENT
  Age: 71 Year
  Sex: Female

DRUGS (5)
  1. CLODY [Concomitant]
     Active Substance: CLODRONATE DISODIUM
     Route: 042
  2. LOBIVON [Concomitant]
     Active Substance: NEBIVOLOL HYDROCHLORIDE
  3. CONDRAL [CHONDROITIN SULFATE] [Concomitant]
     Dosage: 400 MG
  4. EPCLUSA [Suspect]
     Active Substance: SOFOSBUVIR\VELPATASVIR
     Indication: CHRONIC HEPATITIS C
     Route: 048
     Dates: start: 20190520
  5. LEXIL [Concomitant]
     Active Substance: BROMAZEPAM\PROPANTHELINE BROMIDE

REACTIONS (3)
  - Syncope [Recovering/Resolving]
  - Hypoacusis [Recovering/Resolving]
  - Atrial fibrillation [Recovering/Resolving]

NARRATIVE: CASE EVENT DATE: 20190607
